FAERS Safety Report 4429653-9 (Version None)
Quarter: 2004Q3

REPORT INFORMATION
  Report Type: 
  Country: None (occurrence: None)
  Receive Date: 20040819
  Receipt Date: 20040701
  Transmission Date: 20050211
  Serious: Yes (Life-Threatening, Hospitalization, Other)
  Sender: FDA-Public Use
  Company Number: US-MERCK-0407USA00196

PATIENT
  Age: 67 Year
  Sex: Male
  Weight: 95 kg

DRUGS (10)
  1. LORTAB [Concomitant]
     Route: 065
  2. ALLOPURINOL [Concomitant]
     Indication: GOUT
     Route: 048
  3. COREG [Concomitant]
     Route: 065
  4. LASIX [Concomitant]
     Indication: CARDIAC FAILURE CONGESTIVE
     Route: 048
  5. AMARYL [Concomitant]
     Indication: DIABETES MELLITUS
     Route: 048
  6. LISINOPRIL [Concomitant]
     Indication: CARDIAC FAILURE CONGESTIVE
     Route: 048
  7. LISINOPRIL [Concomitant]
     Indication: HYPERTENSION
     Route: 048
  8. METFORMIN [Concomitant]
     Indication: DIABETES MELLITUS
     Route: 048
  9. ZOCOR [Suspect]
     Indication: LIPIDS INCREASED
     Route: 048
     Dates: start: 19980101, end: 20040601
  10. ZOCOR [Suspect]
     Indication: CORONARY ARTERY DISEASE
     Route: 048
     Dates: start: 19980101, end: 20040601

REACTIONS (4)
  - RENAL FUNCTION TEST ABNORMAL [None]
  - RHABDOMYOLYSIS [None]
  - SEPTIC ARTHRITIS STAPHYLOCOCCAL [None]
  - STAPHYLOCOCCAL BACTERAEMIA [None]
